FAERS Safety Report 17137021 (Version 1)
Quarter: 2019Q4

REPORT INFORMATION
  Report Type: Spontaneous
  Country: RU (occurrence: RU)
  Receive Date: 20191210
  Receipt Date: 20191210
  Transmission Date: 20200122
  Serious: Yes (Death, Other)
  Sender: FDA-Public Use
  Company Number: RU-BAYER-2019-218816

PATIENT
  Sex: Male

DRUGS (2)
  1. NEXAVAR [Suspect]
     Active Substance: SORAFENIB
     Indication: OSTEOSARCOMA
     Dosage: UNK
     Dates: start: 201809
  2. ANALGESIC [MENTHOL;METHYL SALICYLATE] [Concomitant]
     Indication: PAIN

REACTIONS (6)
  - Off label use [None]
  - Product use in unapproved indication [None]
  - Metastasis [None]
  - Hypoaesthesia [None]
  - Death [Fatal]
  - Drug ineffective [None]

NARRATIVE: CASE EVENT DATE: 20191126
